FAERS Safety Report 9349552 (Version 1)
Quarter: 2013Q2

REPORT INFORMATION
  Report Type: Spontaneous
  Country: FR (occurrence: FR)
  Receive Date: 20130614
  Receipt Date: 20130614
  Transmission Date: 20140414
  Serious: Yes (Hospitalization)
  Sender: FDA-Public Use
  Company Number: FR-GLAXOSMITHKLINE-B0897702A

PATIENT
  Age: 44 Year
  Sex: Male

DRUGS (8)
  1. ZOVIRAX [Suspect]
     Indication: ORAL HERPES
     Route: 065
     Dates: start: 20110727
  2. KIDROLASE [Suspect]
     Indication: B-CELL TYPE ACUTE LEUKAEMIA
     Route: 042
     Dates: start: 20110718, end: 201110
  3. TIENAM [Suspect]
     Indication: ESCHERICHIA INFECTION
     Route: 065
     Dates: start: 20110727
  4. AMIKACINE [Suspect]
     Indication: ESCHERICHIA INFECTION
     Route: 065
     Dates: start: 20110727
  5. CORTICOID [Concomitant]
     Route: 065
     Dates: start: 20110708
  6. VINCRISTINE [Concomitant]
     Indication: B-CELL TYPE ACUTE LEUKAEMIA
     Route: 065
     Dates: start: 20110718
  7. DAUNORUBICIN [Concomitant]
     Indication: B-CELL TYPE ACUTE LEUKAEMIA
     Route: 065
     Dates: start: 20110718
  8. CYCLOPHOSPHAMIDE [Concomitant]
     Indication: B-CELL TYPE ACUTE LEUKAEMIA
     Route: 065
     Dates: start: 20110718

REACTIONS (2)
  - Hepatocellular injury [Recovered/Resolved]
  - Cholestatic pruritus [Recovered/Resolved]
